FAERS Safety Report 9923929 (Version 1)
Quarter: 2014Q1

REPORT INFORMATION
  Report Type: Spontaneous
  Country: US (occurrence: US)
  Receive Date: 20140225
  Receipt Date: 20140225
  Transmission Date: 20141002
  Serious: No
  Sender: FDA-Public Use
  Company Number: US-AMGEN-USASP2014006504

PATIENT
  Age: 66 Year
  Sex: Female

DRUGS (2)
  1. ENBREL [Suspect]
     Indication: PSORIASIS
     Dosage: 50 MG, ONCE A WEEK
     Route: 065
     Dates: start: 201311, end: 201312
  2. METHOTREXATE [Concomitant]
     Dosage: 2.5 MG, ONCE A WEEK
     Dates: start: 201308

REACTIONS (1)
  - Psoriasis [Not Recovered/Not Resolved]
